FAERS Safety Report 10137921 (Version 3)
Quarter: 2014Q2

REPORT INFORMATION
  Report Type: Spontaneous
  Country: JP (occurrence: JP)
  Receive Date: 20140429
  Receipt Date: 20140527
  Transmission Date: 20141212
  Serious: Yes (Hospitalization)
  Sender: FDA-Public Use
  Company Number: JP-ABBVIE-14P-087-1231227-00

PATIENT
  Sex: Male

DRUGS (4)
  1. HUMIRA [Suspect]
     Indication: PSORIASIS
     Route: 058
     Dates: start: 20120628, end: 20120628
  2. HUMIRA [Suspect]
     Route: 058
     Dates: start: 20110128, end: 20140424
  3. FLUOCINONIDE [Concomitant]
     Indication: PSORIASIS
     Route: 061
     Dates: start: 200312
  4. CALCIPOTRIOL [Concomitant]
     Indication: PSORIASIS
     Route: 061
     Dates: start: 200312

REACTIONS (1)
  - Rectal cancer [Unknown]
